FAERS Safety Report 16998347 (Version 1)
Quarter: 2019Q4

REPORT INFORMATION
  Report Type: Spontaneous
  Country: US (occurrence: US)
  Receive Date: 20191105
  Receipt Date: 20191105
  Transmission Date: 20200122
  Serious: Yes (Life-Threatening, Hospitalization)
  Sender: FDA-Public Use
  Company Number: None

PATIENT
  Age: 59 Year
  Sex: Female
  Weight: 65.7 kg

DRUGS (9)
  1. FENTANYL. [Concomitant]
     Active Substance: FENTANYL
     Dates: start: 20190225, end: 20190225
  2. BACITRACIN INJECTION [Concomitant]
     Dates: start: 20190225, end: 20190225
  3. LIDOCAINE 1% WITH EPINEPHRINE [Concomitant]
     Active Substance: EPINEPHRINE\LIDOCAINE
     Dates: start: 20190225, end: 20190225
  4. DEXAMETHASONE NA PHOS (DECADRON) 20 MG/5 ML VIAL  10 MG [Concomitant]
     Dates: start: 20190225, end: 20190225
  5. EPHEDRINE (EPHEDRINE) 50 MG/ML AMP [Concomitant]
     Dates: start: 20190225, end: 20190225
  6. ALBUMAN, HUMAN [Concomitant]
     Dates: start: 20190225, end: 20190225
  7. LIDOCAINE 2% [Concomitant]
     Active Substance: LIDOCAINE
     Dates: start: 20190225, end: 20190225
  8. CEFAZOLIN PREMIXED BAG [Suspect]
     Active Substance: CEFAZOLIN
     Indication: PROPHYLAXIS
     Route: 041
     Dates: start: 20190225, end: 20190225
  9. FLUOXETINE [Concomitant]
     Active Substance: FLUOXETINE HYDROCHLORIDE

REACTIONS (6)
  - Anaphylactic reaction [None]
  - Endotracheal intubation complication [None]
  - Breath sounds abnormal [None]
  - Hypotension [None]
  - Procedural complication [None]
  - Respiratory disorder [None]

NARRATIVE: CASE EVENT DATE: 20190225
